FAERS Safety Report 19210641 (Version 1)
Quarter: 2021Q2

REPORT INFORMATION
  Report Type: Spontaneous
  Country: US (occurrence: US)
  Receive Date: 20210503
  Receipt Date: 20210503
  Transmission Date: 20210717
  Serious: No
  Sender: FDA-Public Use
  Company Number: None

PATIENT
  Age: 74 Year
  Sex: Female
  Weight: 69.75 kg

DRUGS (7)
  1. LEVOTHYROXINE SODIUM TABLETS USP 75 MCG [Suspect]
     Active Substance: LEVOTHYROXINE SODIUM
     Indication: HYPOTHYROIDISM
     Dosage: ?          QUANTITY:1 TABLET(S);?
     Route: 048
     Dates: start: 20210323, end: 20210430
  2. TYLENOL [Concomitant]
     Active Substance: ACETAMINOPHEN
  3. ONE?A?DAY NOS [Concomitant]
     Active Substance: MINERALS\VITAMINS
  4. CALCIUM [Concomitant]
     Active Substance: CALCIUM
  5. VITAMIN D [Concomitant]
     Active Substance: VITAMIN D NOS
  6. ADVIL [Concomitant]
     Active Substance: IBUPROFEN
  7. CBD OIL [Concomitant]
     Active Substance: CANNABIDIOL\HERBALS

REACTIONS (9)
  - Condition aggravated [None]
  - Arthralgia [None]
  - Tremor [None]
  - Pain [None]
  - Muscle spasms [None]
  - Product substitution issue [None]
  - Palpitations [None]
  - Fatigue [None]
  - Balance disorder [None]

NARRATIVE: CASE EVENT DATE: 20210430
